FAERS Safety Report 21653326 (Version 2)
Quarter: 2022Q4

REPORT INFORMATION
  Report Type: Spontaneous
  Country: US (occurrence: US)
  Receive Date: 20221128
  Receipt Date: 20221207
  Transmission Date: 20230113
  Serious: No
  Sender: FDA-Public Use
  Company Number: US-JNJFOC-20221148332

PATIENT
  Age: 50 Year

DRUGS (2)
  1. STELARA [Suspect]
     Active Substance: USTEKINUMAB
     Indication: Gastrooesophageal reflux disease
     Route: 058
     Dates: start: 202012
  2. STELARA [Suspect]
     Active Substance: USTEKINUMAB
     Indication: Crohn^s disease

REACTIONS (2)
  - Syringe issue [Unknown]
  - Product dose omission issue [Unknown]

NARRATIVE: CASE EVENT DATE: 20221118
